FAERS Safety Report 18187171 (Version 1)
Quarter: 2020Q3

REPORT INFORMATION
  Report Type: Spontaneous
  Country: AU (occurrence: AU)
  Receive Date: 20200824
  Receipt Date: 20200824
  Transmission Date: 20201103
  Serious: Yes (Life-Threatening, Hospitalization, Other)
  Sender: FDA-Public Use
  Company Number: AU-ALS-000086

PATIENT
  Age: 28 Year
  Sex: Male

DRUGS (2)
  1. QUETIAPINE. [Suspect]
     Active Substance: QUETIAPINE
     Indication: DEPRESSION
     Dosage: 200 MG NOCTE
     Route: 048
  2. CLOMIPRAMINE [Concomitant]
     Active Substance: CLOMIPRAMINE
     Indication: OBSESSIVE-COMPULSIVE DISORDER
     Dosage: 150 MG NOCTE
     Route: 065

REACTIONS (7)
  - Compartment syndrome [Recovered/Resolved]
  - Intentional overdose [Unknown]
  - Brachial plexus injury [Recovering/Resolving]
  - Acute kidney injury [Recovered/Resolved]
  - Myositis [Recovering/Resolving]
  - Rhabdomyolysis [Recovering/Resolving]
  - Neurological symptom [Recovered/Resolved]
